FAERS Safety Report 21071251 (Version 1)
Quarter: 2022Q3

REPORT INFORMATION
  Report Type: Report from Study
  Country: US (occurrence: None)
  Receive Date: 20220712
  Receipt Date: 20220712
  Transmission Date: 20221027
  Serious: Yes (Death)
  Sender: FDA-Public Use
  Company Number: 2022A249569

PATIENT
  Sex: Male
  Weight: 88.2 kg

DRUGS (1)
  1. CALQUENCE [Suspect]
     Active Substance: ACALABRUTINIB
     Indication: Prostate cancer
     Route: 048
     Dates: start: 202203

REACTIONS (1)
  - Death [Fatal]
